FAERS Safety Report 4686948-1 (Version None)
Quarter: 2005Q2

REPORT INFORMATION
  Report Type: 
  Country: None (occurrence: None)
  Receive Date: 20050608
  Receipt Date: 20050524
  Transmission Date: 20051028
  Serious: No
  Sender: FDA-Public Use
  Company Number: USA050599167

PATIENT
  Age: 15 Year
  Sex: Male

DRUGS (4)
  1. STRATTERA [Suspect]
     Indication: ATTENTION DEFICIT/HYPERACTIVITY DISORDER
     Dosage: 60 MG
     Dates: start: 20041201, end: 20050401
  2. ZYPREXA [Concomitant]
  3. DEPAKOTE [Concomitant]
  4. LITHIUM [Concomitant]

REACTIONS (1)
  - HEPATIC ENZYME INCREASED [None]
